FAERS Safety Report 25438219 (Version 1)
Quarter: 2025Q2

REPORT INFORMATION
  Report Type: Spontaneous
  Country: US (occurrence: US)
  Receive Date: 20250616
  Receipt Date: 20250616
  Transmission Date: 20250716
  Serious: No
  Sender: GLAXOSMITHKLINE
  Company Number: US-GSK-US2025074199

PATIENT
  Age: 87 Year
  Sex: Female
  Weight: 68.95 kg

DRUGS (1)
  1. BREO ELLIPTA [Suspect]
     Active Substance: FLUTICASONE FUROATE\VILANTEROL TRIFENATATE
     Indication: Asthma
     Dosage: 1 PUFF(S), QD
     Dates: start: 2020

REACTIONS (1)
  - Metapneumovirus infection [Recovering/Resolving]

NARRATIVE: CASE EVENT DATE: 20250530
